FAERS Safety Report 6978946 (Version 4)
Quarter: 2014Q2

REPORT INFORMATION
  Report Type: Spontaneous
  Country: US (occurrence: US)
  Receive Date: 20090427
  Receipt Date: 20140416
  Transmission Date: 20141212
  Serious: Yes (Other)
  Sender: FDA-Public Use
  Company Number: US-ALEXION-A200900333

PATIENT
  Age: 37 Year
  Sex: Female

DRUGS (5)
  1. SOLIRIS [Suspect]
     Indication: PAROXYSMAL NOCTURNAL HAEMOGLOBINURIA
     Route: 042
  2. SOLIRIS [Suspect]
     Dosage: 900 MG, Q2W
     Route: 042
  3. AXERT [Concomitant]
     Indication: MIGRAINE
     Dosage: UNK
     Route: 048
  4. TOPAMAX [Concomitant]
     Indication: MIGRAINE
     Dosage: UNK
     Route: 048
  5. FOLIC ACID [Concomitant]
     Indication: PAROXYSMAL NOCTURNAL HAEMOGLOBINURIA
     Dosage: UNK
     Route: 048

REACTIONS (4)
  - Polyp [Recovered/Resolved]
  - Ovarian operation [Recovered/Resolved]
  - Pain [Unknown]
  - Fatigue [Not Recovered/Not Resolved]
